FAERS Safety Report 9252646 (Version 1)
Quarter: 2013Q2

REPORT INFORMATION
  Report Type: Spontaneous
  Country: US (occurrence: US)
  Receive Date: 20130424
  Receipt Date: 20130424
  Transmission Date: 20140414
  Serious: Yes (Other)
  Sender: FDA-Public Use
  Company Number: US-GLAXOSMITHKLINE-A1020640A

PATIENT
  Sex: Female

DRUGS (2)
  1. TYKERB [Suspect]
     Indication: BREAST CANCER
     Route: 048
  2. XELODA [Concomitant]

REACTIONS (4)
  - Carcinoembryonic antigen increased [Recovered/Resolved]
  - Adverse event [Recovered/Resolved]
  - White blood cell count decreased [Recovered/Resolved]
  - Drug effect decreased [Recovered/Resolved]
